FAERS Safety Report 7930480-6 (Version None)
Quarter: 2011Q4

REPORT INFORMATION
  Report Type: 
  Country: None (occurrence: None)
  Receive Date: 20111121
  Receipt Date: 20111107
  Transmission Date: 20120403
  Serious: Yes (Hospitalization)
  Sender: FDA-Public Use
  Company Number: US-ROCHE-1012292

PATIENT

DRUGS (3)
  1. HERCEPTIN [Suspect]
     Indication: NEOPLASM MALIGNANT
     Dosage: LOADING DOSE, ON DAY 1 OF CYCLE 1, OVER 90 MINUTES
     Route: 042
     Dates: start: 20010220
  2. TIPIFARNIB [Suspect]
     Indication: NEOPLASM MALIGNANT
     Dosage: FORM: NOT REPORTED
     Route: 048
     Dates: start: 20010220
  3. HERCEPTIN [Suspect]
     Dosage: MAINTENANCE DOSE, OVER 30 MINUTES EVERY WEEK ON DAY 1 FOR 4 WEEKS, EVERY 4 WEEKLY
     Route: 042

REACTIONS (2)
  - GASTROINTESTINAL DISORDER [None]
  - NON-CARDIAC CHEST PAIN [None]
